FAERS Safety Report 8003252-4 (Version None)
Quarter: 2011Q4

REPORT INFORMATION
  Report Type: 
  Country: None (occurrence: None)
  Receive Date: 20111222
  Receipt Date: 20111219
  Transmission Date: 20120403
  Serious: Yes (Death)
  Sender: FDA-Public Use
  Company Number: US-PFIZER INC-2011308743

PATIENT
  Age: 57 Year
  Sex: Female

DRUGS (8)
  1. GABAPENTIN [Suspect]
  2. VENLAFAXINE HCL [Suspect]
  3. DILTIAZEM HCL [Suspect]
  4. METHOTREXATE SODIUM [Suspect]
  5. CLONAZEPAM [Suspect]
  6. BACLOFEN [Suspect]
  7. FLUOXETINE [Suspect]
  8. DIPHENHYDRAMINE [Suspect]

REACTIONS (2)
  - COMPLETED SUICIDE [None]
  - TOXICITY TO VARIOUS AGENTS [None]
